FAERS Safety Report 20026142 (Version 1)
Quarter: 2021Q4

REPORT INFORMATION
  Report Type: Spontaneous
  Country: US (occurrence: US)
  Receive Date: 20211102
  Receipt Date: 20211102
  Transmission Date: 20220303
  Serious: Yes (Hospitalization, Other)
  Sender: FDA-Public Use
  Company Number: US-INCYTE CORPORATION-2021IN010111

PATIENT

DRUGS (9)
  1. JAKAFI [Suspect]
     Active Substance: RUXOLITINIB
     Indication: Myelofibrosis
     Dosage: 10 MILLIGRAM, BID
     Route: 048
     Dates: start: 20210518
  2. NAVITOCLAX [Suspect]
     Active Substance: NAVITOCLAX
     Indication: Myelofibrosis
     Dosage: (1 IN 1 D)
     Route: 048
     Dates: start: 20210518, end: 20211018
  3. ZITHROMAX [Suspect]
     Active Substance: AZITHROMYCIN DIHYDRATE
     Indication: Product used for unknown indication
     Dosage: UNK
     Route: 065
  4. ROCEPHIN [Suspect]
     Active Substance: CEFTRIAXONE SODIUM
     Indication: Product used for unknown indication
     Dosage: UNK
     Route: 065
  5. GINKGO [Concomitant]
     Active Substance: GINKGO
     Indication: Supplementation therapy
     Dosage: 40 MILLIGRAM, AS REQUIRED
     Route: 048
     Dates: start: 2017
  6. TAMSULOSIN [Concomitant]
     Active Substance: TAMSULOSIN
     Indication: Benign prostatic hyperplasia
     Dosage: 0.4 MILLIGRAM, QD
     Route: 048
     Dates: start: 2001
  7. MINERALS\VITAMINS [Concomitant]
     Active Substance: MINERALS\VITAMINS
     Indication: Macular degeneration
     Dosage: 1 DROP, AS REQUIRED
     Route: 047
     Dates: start: 2011
  8. CHONDROITIN SULFATE (BOVINE)\GLUCOSAMINE HYDROCHLORIDE [Concomitant]
     Active Substance: CHONDROITIN SULFATE (BOVINE)\GLUCOSAMINE HYDROCHLORIDE
     Indication: Supplementation therapy
     Dosage: 3 TABLETS, QD
     Route: 048
     Dates: start: 2001
  9. MAGNESIUM CHLORIDE [Concomitant]
     Active Substance: MAGNESIUM CHLORIDE
     Indication: Supplementation therapy
     Dosage: 64 MILLIGRAM, QD
     Route: 048
     Dates: start: 2017

REACTIONS (2)
  - Pneumonia [Recovered/Resolved]
  - Hypoxia [Recovering/Resolving]

NARRATIVE: CASE EVENT DATE: 20211018
